FAERS Safety Report 8779003 (Version 1)
Quarter: 2012Q4

REPORT INFORMATION
  Report Type: 
  Country: US (occurrence: US)
  Receive Date: 20120912
  Receipt Date: 20120912
  Transmission Date: 20130627
  Serious: No
  Sender: FDA-Public Use
  Company Number: US-B.I. PHARMACEUTICALS,INC./RIDGEFIELD-2012-BP-21551BP

PATIENT
  Sex: Male

DRUGS (7)
  1. PRADAXA [Suspect]
     Indication: ATRIAL FIBRILLATION
     Dosage: 300 mg
     Route: 048
     Dates: start: 201109
  2. COREG [Concomitant]
     Indication: ATRIAL FIBRILLATION
  3. SPIRONOLACTONE [Concomitant]
     Indication: CARDIAC DISORDER
  4. FUROSEMIDE [Concomitant]
     Indication: CARDIAC DISORDER
  5. DIGOXIN [Concomitant]
     Indication: CARDIAC DISORDER
  6. CRESTOR [Concomitant]
     Indication: BLOOD CHOLESTEROL INCREASED
  7. LOSARTAN [Concomitant]
     Indication: CARDIAC DISORDER

REACTIONS (1)
  - Gout [Not Recovered/Not Resolved]
